FAERS Safety Report 7333476-0 (Version None)
Quarter: 2011Q1

REPORT INFORMATION
  Report Type: 
  Country: None (occurrence: None)
  Receive Date: 20110304
  Receipt Date: 20110223
  Transmission Date: 20110831
  Serious: Yes (Hospitalization)
  Sender: FDA-Public Use
  Company Number: US-WATSON-2011-02288

PATIENT
  Age: 68 Year
  Sex: Male

DRUGS (1)
  1. PREDNISONE (WATSON LABORATORIES) [Suspect]
     Indication: EOSINOPHILIC PNEUMONIA
     Dosage: LONG TERM THERAPY

REACTIONS (4)
  - PLATYPNOEA [None]
  - ATRIAL SEPTAL DEFECT [None]
  - LIPOMATOUS HYPERTROPHY OF THE INTERATRIAL SEPTUM [None]
  - MITRAL VALVE STENOSIS [None]
